FAERS Safety Report 5336548-5 (Version None)
Quarter: 2007Q2

REPORT INFORMATION
  Report Type: 
  Country: None (occurrence: None)
  Receive Date: 20070524
  Receipt Date: 20070514
  Transmission Date: 20071010
  Serious: Yes (Life-Threatening, Hospitalization, Other)
  Sender: FDA-Public Use
  Company Number: 2007SP006759

PATIENT
  Age: 41 Year
  Sex: Male

DRUGS (4)
  1. PEG-INTRON [Suspect]
     Indication: HEPATITIS C
     Dosage: 100 MCG;QW;SC
     Route: 058
     Dates: start: 20050813, end: 20060527
  2. REBETOL [Suspect]
     Indication: HEPATITIS C
     Dosage: 400 MG;QD; PO
     Route: 048
     Dates: start: 20050813, end: 20060527
  3. GASTER D [Concomitant]
  4. HACHIAZULE [Concomitant]

REACTIONS (9)
  - CARDIAC MURMUR [None]
  - ENDOCARDITIS [None]
  - NASOPHARYNGITIS [None]
  - PLATELET COUNT DECREASED [None]
  - PLEURAL EFFUSION [None]
  - RENAL DISORDER [None]
  - SEPTIC EMBOLUS [None]
  - SEPTIC SHOCK [None]
  - STAPHYLOCOCCAL INFECTION [None]
